FAERS Safety Report 6558812-4 (Version None)
Quarter: 2010Q1

REPORT INFORMATION
  Report Type: 
  Country: None (occurrence: None)
  Receive Date: 20100129
  Receipt Date: 20100120
  Transmission Date: 20100710
  Serious: Yes (Other)
  Sender: FDA-Public Use
  Company Number: PHHY2009FR52764

PATIENT
  Sex: Male

DRUGS (4)
  1. RASILEZ [Suspect]
     Indication: HYPERTENSION
     Dosage: 300 MG/DAY
     Route: 048
     Dates: start: 20091020, end: 20091114
  2. NAFTILUX [Concomitant]
     Dosage: 2 DF DAILY
     Route: 048
  3. EUPRESSYL [Concomitant]
     Dosage: 2 DF DAILY
     Route: 048
  4. IPERTEN [Concomitant]
     Dosage: 1 DF DAILY
     Route: 048

REACTIONS (10)
  - BLISTER [None]
  - CONCOMITANT DISEASE AGGRAVATED [None]
  - DERMATITIS [None]
  - DERMATITIS BULLOUS [None]
  - ECZEMA VESICULAR [None]
  - EOSINOPHILIA [None]
  - GENERALISED ERYTHEMA [None]
  - PEMPHIGOID [None]
  - PRURITUS [None]
  - SKIN LESION [None]
